FAERS Safety Report 20783693 (Version 1)
Quarter: 2022Q2

REPORT INFORMATION
  Report Type: Spontaneous
  Country: US (occurrence: None)
  Receive Date: 20220504
  Receipt Date: 20220504
  Transmission Date: 20220720
  Serious: No
  Sender: FDA-Public Use
  Company Number: 2022A137938

PATIENT

DRUGS (1)
  1. CALQUENCE [Suspect]
     Active Substance: ACALABRUTINIB
     Route: 048
     Dates: start: 20220328

REACTIONS (4)
  - Headache [Unknown]
  - Insomnia [Unknown]
  - Impaired work ability [Unknown]
  - Decreased activity [Unknown]
